FAERS Safety Report 7423258-3 (Version None)
Quarter: 2011Q2

REPORT INFORMATION
  Report Type: 
  Country: None (occurrence: None)
  Receive Date: 20110419
  Receipt Date: 20110414
  Transmission Date: 20111010
  Serious: Yes (Life-Threatening, Other)
  Sender: FDA-Public Use
  Company Number: US-PFIZER INC-2011082991

PATIENT
  Sex: Male
  Weight: 63.492 kg

DRUGS (1)
  1. ROBITUSSIN CHEST CONGESTION [Suspect]
     Dosage: THREE BOTTLES AT A TIME
     Route: 048
     Dates: start: 20110301, end: 20110101

REACTIONS (5)
  - OVERDOSE [None]
  - AGITATION [None]
  - SUICIDAL IDEATION [None]
  - ANXIETY [None]
  - DRUG ABUSE [None]
